FAERS Safety Report 7467132-5 (Version None)
Quarter: 2011Q2

REPORT INFORMATION
  Report Type: 
  Country: None (occurrence: None)
  Receive Date: 20110509
  Receipt Date: 20101028
  Transmission Date: 20111010
  Serious: No
  Sender: FDA-Public Use
  Company Number: US-ALEXION-A201001384

PATIENT
  Sex: Female
  Weight: 106.94 kg

DRUGS (12)
  1. EXJADE [Concomitant]
     Dosage: 2000 MG, QD
     Route: 048
  2. IBUPROFEN [Concomitant]
     Indication: PAIN
     Dosage: 200 MG, TID PRN
     Route: 048
  3. AMBIEN [Concomitant]
     Dosage: UNK
     Route: 048
  4. PANTOPRAZOLE [Concomitant]
     Dosage: 40 MG, QD
  5. ARIXTRA [Concomitant]
     Dosage: 5 MG, QD
     Route: 058
  6. OXYCONTIN [Concomitant]
     Dosage: 40 MG, BID
     Route: 048
  7. SOLIRIS [Suspect]
     Indication: PAROXYSMAL NOCTURNAL HAEMOGLOBINURIA
     Dosage: UNK
     Route: 042
     Dates: start: 20070501
  8. TYLENOL (CAPLET) [Concomitant]
     Indication: PAIN
     Dosage: 1000 MG, QID PRN
     Route: 048
  9. BENADRYL [Concomitant]
     Dosage: UNK
     Route: 048
  10. SOLIRIS [Suspect]
     Dosage: 900 MG, Q2W
     Route: 042
  11. LORAZEPAM [Concomitant]
     Indication: ANXIETY
     Dosage: 0.5 MG, QD PRN
     Route: 048
  12. OXYCODONE [Concomitant]
     Indication: PAIN
     Dosage: 5 MG, QID PRN

REACTIONS (6)
  - RESPIRATORY TRACT CONGESTION [None]
  - WHEEZING [None]
  - INFLUENZA [None]
  - HAEMOGLOBIN DECREASED [None]
  - PYREXIA [None]
  - PRODUCTIVE COUGH [None]
